FAERS Safety Report 5903139-4 (Version None)
Quarter: 2008Q3

REPORT INFORMATION
  Report Type: 
  Country: None (occurrence: None)
  Receive Date: 20080930
  Receipt Date: 20080925
  Transmission Date: 20090109
  Serious: Yes (Other)
  Sender: FDA-Public Use
  Company Number: US-ELI_LILLY_AND_COMPANY-US200809006036

PATIENT
  Sex: Male

DRUGS (2)
  1. HUMALOG [Suspect]
  2. HUMULIN N [Suspect]
     Dosage: UNK, AS NEEDED

REACTIONS (3)
  - CHOLECYSTECTOMY [None]
  - PANCREATECTOMY [None]
  - SPLENECTOMY [None]
